FAERS Safety Report 23735412 (Version 2)
Quarter: 2024Q2

REPORT INFORMATION
  Report Type: Spontaneous
  Country: ES (occurrence: ES)
  Receive Date: 20240412
  Receipt Date: 20240513
  Transmission Date: 20240715
  Serious: Yes (Death, Other)
  Sender: FDA-Public Use
  Company Number: ES-ASTELLAS-2024US010559

PATIENT
  Age: 63 Year
  Sex: Female

DRUGS (1)
  1. PADCEV [Suspect]
     Active Substance: ENFORTUMAB VEDOTIN-EJFV
     Indication: Transitional cell carcinoma metastatic
     Dosage: 1.25 MG/KG, CYCLIC (1.25 MG/KG REGIMEN ON DAYS 1, 8,15 EVERY 28 DAYS)
     Route: 065
     Dates: start: 20231220, end: 20240201

REACTIONS (5)
  - Malignant neoplasm progression [Fatal]
  - Metastases to bone [Fatal]
  - Peripheral motor neuropathy [Not Recovered/Not Resolved]
  - Weight decreased [Unknown]
  - Nausea [Unknown]

NARRATIVE: CASE EVENT DATE: 20240215
